FAERS Safety Report 6968532-X (Version None)
Quarter: 2010Q3

REPORT INFORMATION
  Report Type: 
  Country: None (occurrence: None)
  Receive Date: 20100907
  Receipt Date: 20100826
  Transmission Date: 20110219
  Serious: Yes (Hospitalization, Other)
  Sender: FDA-Public Use
  Company Number: CH-PFIZER INC-2010102350

PATIENT
  Age: 43 Year
  Sex: Male

DRUGS (1)
  1. LYRICA [Suspect]
     Indication: BACK PAIN
     Dosage: UNK
     Dates: end: 20100812

REACTIONS (4)
  - DEPRESSION [None]
  - ENCEPHALITIS VIRAL [None]
  - INSOMNIA [None]
  - WITHDRAWAL SYNDROME [None]
